FAERS Safety Report 7472071-X (Version None)
Quarter: 2011Q2

REPORT INFORMATION
  Report Type: 
  Country: None (occurrence: None)
  Receive Date: 20110511
  Receipt Date: 20101123
  Transmission Date: 20111010
  Serious: No
  Sender: FDA-Public Use
  Company Number: A0896777A

PATIENT
  Age: 62 Year
  Sex: Female

DRUGS (2)
  1. UNSPECIFIED MEDICATION [Suspect]
     Route: 065
  2. TYKERB [Suspect]
     Dosage: 250MG UNKNOWN
     Route: 048
     Dates: start: 20101001

REACTIONS (1)
  - PRURITUS GENERALISED [None]
